FAERS Safety Report 6085853-6 (Version None)
Quarter: 2009Q1

REPORT INFORMATION
  Report Type: 
  Country: None (occurrence: None)
  Receive Date: 20090220
  Receipt Date: 20090211
  Transmission Date: 20090719
  Serious: Yes (Death, Life-Threatening, Hospitalization)
  Sender: FDA-Public Use
  Company Number: B0558721A

PATIENT
  Age: 61 Year
  Sex: Female

DRUGS (10)
  1. HYCAMTIN [Suspect]
     Indication: SMALL CELL LUNG CANCER METASTATIC
     Dosage: 4MGM2 PER DAY
     Route: 042
     Dates: start: 20081117, end: 20081125
  2. CORDARONE [Concomitant]
  3. LASIX [Concomitant]
  4. LOVENOX [Concomitant]
  5. SOLU-MEDROL [Concomitant]
  6. MOTILIUM [Concomitant]
  7. ZOPHREN [Concomitant]
  8. PLAVIX [Concomitant]
  9. SEROPRAM [Concomitant]
  10. ATARAX [Concomitant]

REACTIONS (7)
  - ASTHENIA [None]
  - CATHETER SITE HAEMORRHAGE [None]
  - FEBRILE BONE MARROW APLASIA [None]
  - GENERAL PHYSICAL HEALTH DETERIORATION [None]
  - HEADACHE [None]
  - PANCYTOPENIA [None]
  - SEPTIC SHOCK [None]
